FAERS Safety Report 9734683 (Version 1)
Quarter: 2013Q4

REPORT INFORMATION
  Report Type: Spontaneous
  Country: US (occurrence: None)
  Receive Date: 20131204
  Receipt Date: 20131204
  Transmission Date: 20140711
  Serious: Yes (Hospitalization)
  Sender: FDA-Public Use
  Company Number: None

PATIENT
  Age: 60 Year
  Sex: Male
  Weight: 66.4 kg

DRUGS (2)
  1. CHLORDIAZEPOXIDE [Suspect]
     Indication: INSOMNIA
     Route: 048
     Dates: start: 20080304, end: 20131115
  2. HYDROXYZINE [Suspect]
     Indication: ANXIETY
     Dates: start: 20130522

REACTIONS (10)
  - Fall [None]
  - Decreased appetite [None]
  - Asthenia [None]
  - Confusional state [None]
  - Memory impairment [None]
  - Lethargy [None]
  - Loss of consciousness [None]
  - Dizziness [None]
  - Sedation [None]
  - Syncope [None]
